FAERS Safety Report 4478682-8 (Version None)
Quarter: 2004Q4

REPORT INFORMATION
  Report Type: 
  Country: None (occurrence: None)
  Receive Date: 20040923
  Receipt Date: 20040603
  Transmission Date: 20050328
  Serious: No
  Sender: FDA-Public Use
  Company Number: USA040669188

PATIENT
  Age: 89 Year
  Sex: Female

DRUGS (11)
  1. FORTEO [Suspect]
  2. LABETALOL [Concomitant]
  3. LOTREL [Concomitant]
  4. COENZYME Q10 [Concomitant]
  5. FOLIC ACID [Concomitant]
  6. TALACEN [Concomitant]
  7. MULTI-VITAMIN [Concomitant]
  8. CAL-MAG [Concomitant]
  9. PERDIEM [Concomitant]
  10. LORTAB [Concomitant]
  11. TYLENOL [Concomitant]

REACTIONS (2)
  - BLOOD PRESSURE INCREASED [None]
  - OEDEMA PERIPHERAL [None]
